FAERS Safety Report 9423682 (Version 1)
Quarter: 2013Q3

REPORT INFORMATION
  Report Type: Spontaneous
  Country: BR (occurrence: BR)
  Receive Date: 20130727
  Receipt Date: 20130727
  Transmission Date: 20140515
  Serious: Yes (Hospitalization, Other)
  Sender: FDA-Public Use
  Company Number: BR-AMGEN-BRASP2013052151

PATIENT
  Age: 67 Year
  Sex: Female
  Weight: 63 kg

DRUGS (4)
  1. ENBREL [Suspect]
     Indication: RHEUMATOID ARTHRITIS
     Dosage: 50 MG, ONCE WEEKLY
     Route: 065
     Dates: end: 201211
  2. ARAVA [Concomitant]
     Dosage: UNK
     Dates: start: 2011
  3. PREDNISONE [Concomitant]
     Dosage: UNK
     Dates: start: 2011
  4. BROMOPRIDE [Concomitant]
     Dosage: UNK
     Dates: start: 2011

REACTIONS (2)
  - Cardio-respiratory arrest [Unknown]
  - Lung disorder [Unknown]
